FAERS Safety Report 24672007 (Version 2)
Quarter: 2024Q4

REPORT INFORMATION
  Report Type: Spontaneous
  Country: US (occurrence: US)
  Receive Date: 20241127
  Receipt Date: 20241210
  Transmission Date: 20250114
  Serious: Yes (Other)
  Sender: TEVA
  Company Number: US-TEVA-VS-3267113

PATIENT
  Age: 63 Year
  Sex: Female

DRUGS (6)
  1. CARBOPLATIN [Suspect]
     Active Substance: CARBOPLATIN
     Indication: Adenocarcinoma
     Route: 065
     Dates: start: 201903
  2. ANASTROZOLE [Suspect]
     Active Substance: ANASTROZOLE
     Indication: Adenocarcinoma
     Route: 065
     Dates: start: 201812
  3. ANASTROZOLE [Suspect]
     Active Substance: ANASTROZOLE
     Indication: Adenocarcinoma
     Route: 065
     Dates: start: 2019
  4. TRAMETINIB [Suspect]
     Active Substance: TRAMETINIB
     Indication: Adenocarcinoma
     Route: 065
     Dates: start: 201912
  5. DABRAFENIB [Suspect]
     Active Substance: DABRAFENIB
     Indication: Adenocarcinoma
     Route: 065
     Dates: start: 201912
  6. PACLITAXEL [Suspect]
     Active Substance: PACLITAXEL
     Indication: Adenocarcinoma
     Route: 065
     Dates: start: 201903

REACTIONS (3)
  - Drug ineffective [Unknown]
  - Cardiotoxicity [Unknown]
  - Drug resistance [Unknown]

NARRATIVE: CASE EVENT DATE: 20190101
